FAERS Safety Report 9871377 (Version 1)
Quarter: 2014Q1

REPORT INFORMATION
  Report Type: Spontaneous
  Country: SE (occurrence: SE)
  Receive Date: 20140205
  Receipt Date: 20140205
  Transmission Date: 20141002
  Serious: Yes (Other)
  Sender: FDA-Public Use
  Company Number: SE-NAPPMUNDI-GBR-2014-0016906

PATIENT
  Age: 47 Year
  Sex: Female

DRUGS (1)
  1. OXYCONTIN DEPOTTABLETIT [Suspect]
     Indication: CERVICOBRACHIAL SYNDROME

REACTIONS (2)
  - Loss of consciousness [Unknown]
  - Paraesthesia [Unknown]
